FAERS Safety Report 11903327 (Version 1)
Quarter: 2016Q1

REPORT INFORMATION
  Report Type: Report from Study
  Country: BR (occurrence: BR)
  Receive Date: 20160110
  Receipt Date: 20160110
  Transmission Date: 20160526
  Serious: Yes (Hospitalization)
  Sender: FDA-Public Use
  Company Number: PHHY2016BR001072

PATIENT
  Age: 65 Year
  Sex: Female
  Weight: 55 kg

DRUGS (1)
  1. ACLASTA [Suspect]
     Active Substance: ZOLEDRONIC ACID
     Indication: OSTEOPOROSIS
     Dosage: 5 MG, ONE/SINGLE
     Route: 042
     Dates: start: 20150221, end: 20150221

REACTIONS (9)
  - Mouth swelling [Unknown]
  - Back pain [Unknown]
  - Chest pain [Unknown]
  - Depressed mood [Unknown]
  - Cardiac disorder [Unknown]
  - Vein disorder [Unknown]
  - Cerebrovascular accident [Not Recovered/Not Resolved]
  - Feeling abnormal [Unknown]
  - Ischaemia [Unknown]

NARRATIVE: CASE EVENT DATE: 201510
